FAERS Safety Report 6445886-4 (Version None)
Quarter: 2009Q4

REPORT INFORMATION
  Report Type: 
  Country: None (occurrence: None)
  Receive Date: 20091119
  Receipt Date: 20081001
  Transmission Date: 20100525
  Serious: No
  Sender: FDA-Public Use
  Company Number: A0745503A

PATIENT
  Age: 51 Year
  Sex: Male

DRUGS (1)
  1. BUPROPION HCL [Suspect]
     Indication: PAIN
     Dosage: 150MG PER DAY
     Route: 048
     Dates: start: 20080806, end: 20080820

REACTIONS (6)
  - DYSPEPSIA [None]
  - INFLUENZA LIKE ILLNESS [None]
  - MALAISE [None]
  - OFF LABEL USE [None]
  - PAROSMIA [None]
  - PRODUCT QUALITY ISSUE [None]
